FAERS Safety Report 8359594-6 (Version None)
Quarter: 2012Q2

REPORT INFORMATION
  Report Type: 
  Country: None (occurrence: None)
  Receive Date: 20120515
  Receipt Date: 20120508
  Transmission Date: 20120825
  Serious: Yes (Other)
  Sender: FDA-Public Use
  Company Number: US-AMGEN-USASP2012029102

PATIENT
  Age: 75 Year
  Sex: Female

DRUGS (1)
  1. ENBREL [Suspect]
     Indication: RHEUMATOID ARTHRITIS
     Dosage: 50 MG, QWK
     Dates: start: 20101001

REACTIONS (16)
  - RASH [None]
  - OEDEMA PERIPHERAL [None]
  - EYE INFECTION [None]
  - FATIGUE [None]
  - DYSPHONIA [None]
  - ASTHENIA [None]
  - NERVOUSNESS [None]
  - DYSURIA [None]
  - CHROMATURIA [None]
  - DYSPNOEA [None]
  - PRURITUS GENERALISED [None]
  - DEAFNESS [None]
  - URINARY INCONTINENCE [None]
  - ALOPECIA [None]
  - ABDOMINAL DISTENSION [None]
  - ABDOMINAL PAIN [None]
